FAERS Safety Report 6456774-1 (Version None)
Quarter: 2009Q4

REPORT INFORMATION
  Report Type: 
  Country: None (occurrence: None)
  Receive Date: 20091119
  Receipt Date: 20091113
  Transmission Date: 20100525
  Serious: Yes (Hospitalization, Disabling)
  Sender: FDA-Public Use
  Company Number: OSCN-NO-0801L-0024

PATIENT
  Age: 47 Year
  Sex: Male

DRUGS (2)
  1. OMNISCAN [Suspect]
     Indication: BLOOD ALKALINE PHOSPHATASE INCREASED
     Dosage: 14 ML, SINGLE DOSE ABOUT 7 MONTHS AFTER 1ST ADMIN
  2. OMNISCAN [Suspect]
     Indication: BLOOD BILIRUBIN INCREASED
     Dosage: 14 ML, SINGLE DOSE ABOUT 7 MONTHS AFTER 1ST ADMIN

REACTIONS (20)
  - BILE DUCT STENOSIS [None]
  - ERYTHEMA [None]
  - FALL [None]
  - HAEMATOMA [None]
  - HAEMODIALYSIS [None]
  - HYPERAESTHESIA [None]
  - MALIGNANT FIBROUS HISTIOCYTOMA [None]
  - MASS [None]
  - METABOLIC ACIDOSIS [None]
  - METASTASES TO LUNG [None]
  - MUSCULAR WEAKNESS [None]
  - MYXOEDEMA [None]
  - OEDEMA PERIPHERAL [None]
  - PAIN [None]
  - PAIN IN EXTREMITY [None]
  - PARAESTHESIA [None]
  - PORTAL VEIN THROMBOSIS [None]
  - RASH [None]
  - RENAL FAILURE ACUTE [None]
  - SKIN INDURATION [None]
